FAERS Safety Report 4377771-6 (Version None)
Quarter: 2004Q2

REPORT INFORMATION
  Report Type: 
  Country: None (occurrence: None)
  Receive Date: 20040615
  Receipt Date: 20040615
  Transmission Date: 20050107
  Serious: No
  Sender: FDA-Public Use
  Company Number: None

PATIENT
  Age: 66 Year
  Sex: Female

DRUGS (3)
  1. BENAZEPRIL 20 MG MEDS BY TEVA [Suspect]
     Indication: HYPERTENSION
     Dosage: ONE TAB PO DAILY
     Route: 048
     Dates: start: 20040527, end: 20040609
  2. TRIAMTERINE/HCTZ [Concomitant]
  3. ATENOLOL [Concomitant]

REACTIONS (2)
  - BLOOD PRESSURE INCREASED [None]
  - PHARMACEUTICAL PRODUCT COMPLAINT [None]
